FAERS Safety Report 23320656 (Version 1)
Quarter: 2023Q4

REPORT INFORMATION
  Report Type: Spontaneous
  Country: US (occurrence: None)
  Receive Date: 20231219
  Receipt Date: 20231219
  Transmission Date: 20240110
  Serious: Yes (Hospitalization)
  Sender: FDA-Public Use
  Company Number: None

PATIENT
  Age: 62 Year
  Sex: Male
  Weight: 107.5 kg

DRUGS (2)
  1. OZEMPIC [Suspect]
     Active Substance: SEMAGLUTIDE
     Indication: Diabetes mellitus
     Dosage: 2MG WEEKLY SUBCUTNEOUS?
     Route: 058
     Dates: start: 20190827, end: 20231218
  2. JARDIANCE [Suspect]
     Active Substance: EMPAGLIFLOZIN
     Indication: Diabetes mellitus
     Dosage: FREQUENCY : DAILY?
     Route: 048
     Dates: start: 20181106, end: 20231218

REACTIONS (2)
  - Perirectal abscess [None]
  - Necrotising fasciitis [None]

NARRATIVE: CASE EVENT DATE: 20231218
